FAERS Safety Report 15193341 (Version 1)
Quarter: 2018Q3

REPORT INFORMATION
  Report Type: Spontaneous
  Country: US (occurrence: US)
  Receive Date: 20180626
  Receipt Date: 20180626
  Transmission Date: 20181010
  Serious: No
  Sender: FDA-Public Use
  Company Number: None

PATIENT
  Age: 58 Year
  Sex: Female

DRUGS (1)
  1. MYCOPHENOLATE MOFETIL CAP 250MG [Suspect]
     Active Substance: MYCOPHENOLATE MOFETIL
     Route: 048
     Dates: start: 20171201, end: 20180626

REACTIONS (5)
  - Joint swelling [None]
  - Blood glucose increased [None]
  - Hypertension [None]
  - Tremor [None]
  - Peripheral swelling [None]

NARRATIVE: CASE EVENT DATE: 20180626
